FAERS Safety Report 15456677 (Version 1)
Quarter: 2018Q4

REPORT INFORMATION
  Report Type: Spontaneous
  Country: AU (occurrence: AU)
  Receive Date: 20181002
  Receipt Date: 20181002
  Transmission Date: 20190204
  Serious: Yes (Death, Hospitalization, Other)
  Sender: FDA-Public Use
  Company Number: AU-SEATTLE GENETICS-2018SGN02080

PATIENT
  Age: 67 Year
  Sex: Male
  Weight: 90 kg

DRUGS (9)
  1. PIPERACILLIN SODIUM, TAZOBACTAM SODIUM [Suspect]
     Active Substance: PIPERACILLIN SODIUM\TAZOBACTAM SODIUM
     Indication: PYREXIA
     Dosage: UNK
     Route: 042
     Dates: start: 20180125, end: 20180131
  2. PANTOPRAZOLE [Concomitant]
     Active Substance: PANTOPRAZOLE
     Dosage: UNK
     Route: 065
  3. TAMSULOSIN [Concomitant]
     Active Substance: TAMSULOSIN
     Dosage: UNK
     Route: 065
  4. SIMETHICONE (DIMETHICONE) [Concomitant]
     Active Substance: DIMETHICONE
     Dosage: UNK
     Route: 065
  5. BISACODYL. [Concomitant]
     Active Substance: BISACODYL
     Dosage: UNK
     Route: 065
  6. TAMSULOSIN [Concomitant]
     Active Substance: TAMSULOSIN
     Dosage: UNK
     Route: 065
  7. PANTOPRAZOLE [Concomitant]
     Active Substance: PANTOPRAZOLE
     Dosage: UNK
     Route: 065
  8. ADCETRIS [Suspect]
     Active Substance: BRENTUXIMAB VEDOTIN
     Indication: COMPOSITE LYMPHOMA
     Dosage: 162 MG, Q21D
     Route: 065
     Dates: start: 201708, end: 20180111
  9. BISACODYL. [Concomitant]
     Active Substance: BISACODYL
     Dosage: UNK
     Route: 065

REACTIONS (8)
  - Liver injury [Fatal]
  - Constipation [Unknown]
  - Abdominal discomfort [Unknown]
  - Neuropathy peripheral [Not Recovered/Not Resolved]
  - Decreased appetite [Unknown]
  - Sepsis [Fatal]
  - Pancytopenia [Unknown]
  - Pyrexia [Recovered/Resolved]

NARRATIVE: CASE EVENT DATE: 20180125
